FAERS Safety Report 21927602 (Version 1)
Quarter: 2023Q1

REPORT INFORMATION
  Report Type: Spontaneous
  Country: US (occurrence: None)
  Receive Date: 20230130
  Receipt Date: 20230130
  Transmission Date: 20230418
  Serious: Yes (Other)
  Sender: FDA-Public Use
  Company Number: None

PATIENT
  Age: 63 Year
  Sex: Male
  Weight: 58.5 kg

DRUGS (10)
  1. ELIQUIS [Suspect]
     Active Substance: APIXABAN
     Indication: Thrombosis
     Dosage: OTHER QUANTITY : 1 TABLET(S);?FREQUENCY : TWICE A DAY;?
     Route: 048
  2. licinopril 15 mg 1 a day [Concomitant]
  3. lirika 5 mg. 2 times daily [Concomitant]
  4. trazadone 50mg at bedtime [Concomitant]
  5. tramadole 50mg. 3 times daily [Concomitant]
  6. apap machine for sleep apnea [Concomitant]
  7. vitamin d 5000mg [Concomitant]
  8. Iron 325 mg [Concomitant]
  9. vitimin C 1000 mg [Concomitant]
  10. cannibis for discomfort and pain and helps to get to sleep with nerve [Concomitant]

REACTIONS (10)
  - Internal haemorrhage [None]
  - Headache [None]
  - Asthenia [None]
  - Loss of personal independence in daily activities [None]
  - Depression [None]
  - Blood iron decreased [None]
  - Fatigue [None]
  - Dyspnoea [None]
  - Wheezing [None]
  - Musculoskeletal chest pain [None]

NARRATIVE: CASE EVENT DATE: 20221223
